FAERS Safety Report 10056869 (Version 2)
Quarter: 2014Q2

REPORT INFORMATION
  Report Type: Spontaneous
  Country: US (occurrence: US)
  Receive Date: 20140403
  Receipt Date: 20140520
  Transmission Date: 20141212
  Serious: Yes (Hospitalization)
  Sender: FDA-Public Use
  Company Number: US-JNJFOC-20140400934

PATIENT
  Age: 77 Year
  Sex: Female

DRUGS (4)
  1. XARELTO [Suspect]
     Indication: PRODUCT USED FOR UNKNOWN INDICATION
     Route: 048
     Dates: start: 201308
  2. SYNTHROID [Concomitant]
     Route: 065
  3. CADUET [Concomitant]
     Route: 065
  4. ADVIL PM [Concomitant]
     Route: 065

REACTIONS (5)
  - Subdural haematoma [Unknown]
  - Contusion [Recovering/Resolving]
  - Adverse drug reaction [Unknown]
  - Malaise [Unknown]
  - Skin mass [Recovering/Resolving]
